FAERS Safety Report 8041379-1 (Version None)
Quarter: 2012Q1

REPORT INFORMATION
  Report Type: 
  Country: None (occurrence: None)
  Receive Date: 20120112
  Receipt Date: 20120104
  Transmission Date: 20120608
  Serious: Yes (Hospitalization)
  Sender: FDA-Public Use
  Company Number: US-BAYER-2011-040439

PATIENT
  Age: 30 Year
  Sex: Female
  Weight: 69.841 kg

DRUGS (10)
  1. MIDRIN [Concomitant]
     Indication: MIGRAINE
     Dosage: UNK
     Route: 048
     Dates: start: 20050426, end: 20050519
  2. COMPAZINE [Concomitant]
     Indication: NAUSEA
     Dosage: 10 MG, PRN
     Route: 048
  3. INDERAL [Concomitant]
     Indication: HEADACHE
     Dosage: 80 MG, QD
     Route: 048
     Dates: start: 20050502, end: 20050513
  4. ACETOLAMIDE [Concomitant]
     Indication: HEADACHE
     Dosage: 250 MG, BID
     Route: 048
  5. DIURETICS [Concomitant]
  6. PREDNISONE [Concomitant]
     Indication: HEADACHE
     Dosage: 5 MG, UNK
     Route: 048
  7. VICODIN [Concomitant]
     Indication: PAIN
     Dosage: UNK UNK, PRN
     Route: 048
  8. IBUPROFEN [Concomitant]
     Indication: PAIN
     Dosage: 600 MG, TID
     Route: 048
     Dates: start: 20050429, end: 20050519
  9. YASMIN [Suspect]
     Indication: ORAL CONTRACEPTION
     Dosage: UNK
     Dates: start: 20021017, end: 20050519
  10. DIAMOX SRC [Concomitant]

REACTIONS (14)
  - EMOTIONAL DISTRESS [None]
  - GENERAL PHYSICAL HEALTH DETERIORATION [None]
  - DIPLOPIA [None]
  - TRANSVERSE SINUS THROMBOSIS [None]
  - JUGULAR VEIN THROMBOSIS [None]
  - NAUSEA [None]
  - FEAR [None]
  - ANXIETY [None]
  - SUPERIOR SAGITTAL SINUS THROMBOSIS [None]
  - PAIN [None]
  - INJURY [None]
  - HEADACHE [None]
  - VOMITING [None]
  - DIZZINESS [None]
